FAERS Safety Report 4525215-3 (Version None)
Quarter: 2004Q4

REPORT INFORMATION
  Report Type: 
  Country: None (occurrence: None)
  Receive Date: 20041117
  Receipt Date: 20040219
  Transmission Date: 20050328
  Serious: Yes (Other)
  Sender: FDA-Public Use
  Company Number: 2004S1000503

PATIENT
  Sex: Male
  Weight: 99.7913 kg

DRUGS (3)
  1. CLOZAPINE [Suspect]
     Indication: SCHIZOPHRENIA
     Dosage: 200MG QD, THEN 300MG QD, ORAL
     Route: 048
     Dates: start: 20031101
  2. BENZTROPINE MESYLATE TABLETS 2MG [Suspect]
     Dosage: 6MG QD, THEN 2MG QD, ORAL
     Route: 048
     Dates: start: 20031101
  3. FLUOXETINE HYDROCHLORIDE [Concomitant]

REACTIONS (6)
  - ANXIETY [None]
  - DRUG EFFECT DECREASED [None]
  - PARAESTHESIA [None]
  - PRURITUS [None]
  - SALIVARY HYPERSECRETION [None]
  - TACHYCARDIA [None]
